FAERS Safety Report 20465688 (Version 1)
Quarter: 2022Q1

REPORT INFORMATION
  Report Type: Spontaneous
  Country: US (occurrence: US)
  Receive Date: 20220212
  Receipt Date: 20220212
  Transmission Date: 20220423
  Serious: Yes (Death, Other)
  Sender: FDA-Public Use
  Company Number: US-AMGEN-USASP2022019706

PATIENT

DRUGS (1)
  1. TRASTUZUMAB [Suspect]
     Active Substance: TRASTUZUMAB
     Indication: Uterine cancer
     Dosage: UNK
     Route: 065

REACTIONS (6)
  - Death [Fatal]
  - Uterine cancer [Unknown]
  - Therapeutic product effect decreased [Unknown]
  - Therapy partial responder [Unknown]
  - Off label use [Unknown]
  - Toxicity to various agents [Unknown]
